FAERS Safety Report 4911725-3 (Version None)
Quarter: 2006Q1

REPORT INFORMATION
  Report Type: 
  Country: None (occurrence: None)
  Receive Date: 20060213
  Receipt Date: 20060203
  Transmission Date: 20060701
  Serious: Yes (Hospitalization, Other)
  Sender: FDA-Public Use
  Company Number: WAES 0602USA00611

PATIENT
  Age: 67 Year
  Sex: Male

DRUGS (7)
  1. DECADRON [Suspect]
     Dosage: 4 MG/DAILY/PO; 12 MG/DAILY/PO; 16 MG/DAILY/PO
     Route: 048
     Dates: start: 20050718, end: 20050725
  2. DECADRON [Suspect]
     Dosage: 4 MG/DAILY/PO; 12 MG/DAILY/PO; 16 MG/DAILY/PO
     Route: 048
     Dates: start: 20050726, end: 20050804
  3. DECADRON [Suspect]
     Dosage: 4 MG/DAILY/PO; 12 MG/DAILY/PO; 16 MG/DAILY/PO
     Route: 048
     Dates: start: 20050805, end: 20051027
  4. DILANTIN [Concomitant]
  5. DIOVAN [Concomitant]
  6. TYLENOL (CAPLET) [Concomitant]
  7. ZOLOFT [Concomitant]

REACTIONS (3)
  - KLEBSIELLA SEPSIS [None]
  - NOSOCOMIAL INFECTION [None]
  - POSTOPERATIVE INFECTION [None]
